FAERS Safety Report 7187222-4 (Version None)
Quarter: 2010Q4

REPORT INFORMATION
  Report Type: 
  Country: None (occurrence: None)
  Receive Date: 20101222
  Receipt Date: 20101202
  Transmission Date: 20110411
  Serious: Yes (Death, Hospitalization)
  Sender: FDA-Public Use
  Company Number: PHHY2010SI85236

PATIENT
  Sex: Male

DRUGS (6)
  1. ZOLEDRONATE T29581+ [Suspect]
     Indication: BONE DISORDER
     Dosage: 4MG/5ML/28DAYS
     Route: 042
     Dates: start: 20090828
  2. NAKLOFEN [Concomitant]
     Dosage: 2 TABLET ONCE DAILY
     Route: 048
     Dates: start: 20090716
  3. AVODART [Concomitant]
     Dosage: 1 TABLET
     Route: 048
     Dates: start: 20090716
  4. OMNIC [Concomitant]
     Dosage: UNK
     Dates: start: 20090716
  5. CASODEX [Concomitant]
     Dosage: UNK
     Dates: start: 20090728
  6. ZOLADEX [Concomitant]
     Dosage: ONCE IN 3 MONTHS
     Route: 058
     Dates: start: 20090728

REACTIONS (3)
  - CACHEXIA [None]
  - CARDIAC FAILURE [None]
  - MALIGNANT NEOPLASM PROGRESSION [None]
